FAERS Safety Report 19725516 (Version 1)
Quarter: 2021Q3

REPORT INFORMATION
  Report Type: Spontaneous
  Country: FR (occurrence: FR)
  Receive Date: 20210820
  Receipt Date: 20210820
  Transmission Date: 20211014
  Serious: Yes (Other)
  Sender: FDA-Public Use
  Company Number: FR-JNJFOC-20210826028

PATIENT
  Age: 60 Year
  Sex: Male
  Weight: 56 kg

DRUGS (5)
  1. RISPERDAL [Suspect]
     Active Substance: RISPERIDONE
     Indication: PRODUCT USED FOR UNKNOWN INDICATION
     Dosage: 8 ML; IN TOTAL
     Route: 048
     Dates: start: 20210714
  2. NEURONTIN [Concomitant]
     Active Substance: GABAPENTIN
     Indication: EPILEPSY
     Dosage: ; IN TOTAL
     Route: 048
     Dates: start: 20210714
  3. LYSANXIA [Suspect]
     Active Substance: PRAZEPAM
     Indication: WRONG PATIENT
     Dosage: 20 DROPS; IN TOTAL
     Route: 048
     Dates: start: 20210714
  4. LOXAPAC [LOXAPINE] [Suspect]
     Active Substance: LOXAPINE
     Indication: WRONG PATIENT
     Dosage: 60 DROPS; IN TOTAL
     Route: 048
     Dates: start: 20210714
  5. TIAPRIDAL [Suspect]
     Active Substance: TIAPRIDE HYDROCHLORIDE
     Indication: EPILEPSY
     Dosage: ; IN TOTAL
     Route: 048
     Dates: start: 20210714

REACTIONS (3)
  - Fall [Recovered/Resolved]
  - Somnolence [Recovered/Resolved]
  - Medication error [Recovered/Resolved]

NARRATIVE: CASE EVENT DATE: 20210714
